FAERS Safety Report 4509969-8 (Version None)
Quarter: 2004Q4

REPORT INFORMATION
  Report Type: 
  Country: None (occurrence: None)
  Receive Date: 20041119
  Receipt Date: 20041108
  Transmission Date: 20050328
  Serious: Yes (Death)
  Sender: FDA-Public Use
  Company Number: US-2004-031875

PATIENT
  Age: 51 Year
  Sex: Female

DRUGS (1)
  1. BETASERON [Suspect]
     Indication: SECONDARY PROGRESSIVE MULTIPLE SCLEROSIS
     Dosage: SUBCUTANEOUS
     Route: 058
     Dates: start: 19950101, end: 20040101

REACTIONS (4)
  - DIARRHOEA [None]
  - DYSPNOEA [None]
  - PROGRESSIVE MULTIPLE SCLEROSIS [None]
  - RENAL DISORDER [None]
